FAERS Safety Report 5092258-3 (Version None)
Quarter: 2006Q3

REPORT INFORMATION
  Report Type: 
  Country: None (occurrence: None)
  Receive Date: 20060825
  Receipt Date: 20060815
  Transmission Date: 20061208
  Serious: Yes (Death, Hospitalization)
  Sender: FDA-Public Use
  Company Number: CLOF-10305

PATIENT
  Age: 59 Year
  Sex: Male

DRUGS (3)
  1. CLOFARABINE [Suspect]
     Indication: MYELODYSPLASTIC SYNDROME
     Dosage: 40 MG PO
     Route: 048
     Dates: start: 20060725, end: 20060729
  2. AMBISOME [Concomitant]
  3. VANCOMYCIN [Concomitant]

REACTIONS (9)
  - BACTERIAL INFECTION [None]
  - BLOOD CULTURE POSITIVE [None]
  - DIALYSIS [None]
  - HYPOTENSION [None]
  - INFECTION [None]
  - LUNG INFILTRATION [None]
  - PNEUMONIA [None]
  - RENAL FAILURE ACUTE [None]
  - SUPRAVENTRICULAR TACHYCARDIA [None]
